FAERS Safety Report 24415766 (Version 2)
Quarter: 2024Q4

REPORT INFORMATION
  Report Type: Report from Study
  Country: FR (occurrence: FR)
  Receive Date: 20241009
  Receipt Date: 20241227
  Transmission Date: 20250115
  Serious: Yes (Disabling)
  Sender: NOVARTIS
  Company Number: FR-002147023-NVSC2023FR172664

PATIENT
  Sex: Male
  Weight: 70 kg

DRUGS (4)
  1. PLUVICTO [Suspect]
     Active Substance: LUTETIUM LU-177 VIPIVOTIDE TETRAXETAN
     Indication: Prostate cancer
     Dosage: 7059 MBQ, (ONCE CYCLE 1)
     Route: 042
     Dates: start: 20230523, end: 20230523
  2. PLUVICTO [Suspect]
     Active Substance: LUTETIUM LU-177 VIPIVOTIDE TETRAXETAN
     Dosage: UNK, ONCE (CYCLE 2, DOSE DECREASED BY 20 PERCENT)
     Route: 042
     Dates: start: 20230705, end: 20230705
  3. PLUVICTO [Suspect]
     Active Substance: LUTETIUM LU-177 VIPIVOTIDE TETRAXETAN
     Dosage: 5866 MBQ, ONCE (CYCLE 3)
     Route: 042
     Dates: start: 20230921, end: 20230921
  4. PLUVICTO [Suspect]
     Active Substance: LUTETIUM LU-177 VIPIVOTIDE TETRAXETAN
     Dosage: 5340 MBQ, ONCE (CYCLE 4) (RETREATMENT)
     Route: 042
     Dates: start: 20241121, end: 20241121

REACTIONS (2)
  - Chronic kidney disease [Not Recovered/Not Resolved]
  - Prescribed underdose [Unknown]

NARRATIVE: CASE EVENT DATE: 20230705
